FAERS Safety Report 17144421 (Version 2)
Quarter: 2019Q4

REPORT INFORMATION
  Report Type: Spontaneous
  Country: US (occurrence: US)
  Receive Date: 20191212
  Receipt Date: 20191212
  Transmission Date: 20200122
  Serious: Yes (Life-Threatening)
  Sender: FDA-Public Use
  Company Number: US-SHIRE-US201943031

PATIENT
  Sex: Female

DRUGS (1)
  1. NATPARA (PARATHYROID HORMONE) [Suspect]
     Active Substance: PARATHYROID HORMONE
     Indication: PRODUCT USED FOR UNKNOWN INDICATION
     Dosage: UNK
     Route: 065

REACTIONS (6)
  - Dyspnoea [Unknown]
  - Ear pain [Unknown]
  - Headache [Unknown]
  - Recalled product [Unknown]
  - Dizziness [Unknown]
  - Paraesthesia [Unknown]
